FAERS Safety Report 5927112-5 (Version None)
Quarter: 2008Q4

REPORT INFORMATION
  Report Type: 
  Country: None (occurrence: None)
  Receive Date: 20081022
  Receipt Date: 20081017
  Transmission Date: 20090506
  Serious: Yes (Hospitalization)
  Sender: FDA-Public Use
  Company Number: US-ROXANE LABORATORIES, INC.-2008-RO-00141RO

PATIENT
  Age: 74 Year
  Sex: Male

DRUGS (7)
  1. PREDNISONE [Suspect]
     Indication: RHEUMATOID ARTHRITIS
     Dosage: 15MG
  2. NAFCILLIN SODIUM [Suspect]
     Indication: CRYPTOCOCCOSIS
  3. CEFTAZIDIME [Suspect]
     Indication: BACTERIAL INFECTION
  4. VANCOMYCIN HYDROCHLORIDE [Suspect]
     Indication: BACTERIAL INFECTION
  5. AMPHOTERICIN B [Suspect]
     Indication: CRYPTOCOCCOSIS
     Dosage: 300MG
  6. FLUCONAZOLE [Concomitant]
     Indication: CRYPTOCOCCOSIS
     Dosage: 400MG
     Route: 042
  7. FLUCONAZOLE [Concomitant]
     Indication: IDIOSYNCRATIC DRUG REACTION
     Dosage: 400MG
     Route: 048

REACTIONS (4)
  - CRYPTOCOCCOSIS [None]
  - DYSPNOEA [None]
  - HYPERTENSION [None]
  - TACHYCARDIA [None]
